FAERS Safety Report 5725211-4 (Version None)
Quarter: 2008Q2

REPORT INFORMATION
  Report Type: 
  Country: None (occurrence: None)
  Receive Date: 20080501
  Receipt Date: 20080422
  Transmission Date: 20081010
  Serious: Yes (Hospitalization)
  Sender: FDA-Public Use
  Company Number: B0517758A

PATIENT
  Age: 68 Year
  Sex: Male

DRUGS (4)
  1. AUGMENTIN '125' [Suspect]
     Indication: SINUSITIS
     Dosage: 500MG SIX TIMES PER DAY
     Route: 048
     Dates: start: 20080111, end: 20080117
  2. SOLUPRED [Suspect]
     Indication: SINUSITIS
     Route: 048
     Dates: start: 20080111, end: 20080117
  3. ALLOPURINOL [Concomitant]
     Dosage: 200MG PER DAY
     Route: 048
  4. XATRAL LP [Concomitant]
     Dosage: 10MG PER DAY
     Route: 048

REACTIONS (14)
  - ACUTE GENERALISED EXANTHEMATOUS PUSTULOSIS [None]
  - BLOOD CALCIUM DECREASED [None]
  - FACE OEDEMA [None]
  - HYPERTHERMIA [None]
  - HYPOALBUMINAEMIA [None]
  - HYPONATRAEMIA [None]
  - HYPOPROTEINAEMIA [None]
  - INFLAMMATION [None]
  - OEDEMA PERIPHERAL [None]
  - PROTEIN URINE PRESENT [None]
  - PRURITUS [None]
  - PURPURA [None]
  - SKIN LESION [None]
  - TOXIC SKIN ERUPTION [None]
